FAERS Safety Report 26120993 (Version 1)
Quarter: 2025Q4

REPORT INFORMATION
  Report Type: Spontaneous
  Country: US (occurrence: None)
  Receive Date: 20251203
  Receipt Date: 20251203
  Transmission Date: 20260117
  Serious: Yes (Hospitalization)
  Sender: FDA-CTU
  Company Number: None

PATIENT
  Sex: Female

DRUGS (1)
  1. LENALIDOMIDE [Suspect]
     Active Substance: LENALIDOMIDE
     Indication: Plasma cell myeloma refractory
     Dosage: OTHER FREQUENCY : DAILY FOR 21 DAYS THEN 7 DAYS OFF;?
     Route: 048
     Dates: start: 20251028

REACTIONS (3)
  - Bone marrow disorder [None]
  - Hypercalcaemia [None]
  - Osteolysis [None]
